FAERS Safety Report 6188832-3 (Version None)
Quarter: 2009Q2

REPORT INFORMATION
  Report Type: 
  Country: None (occurrence: None)
  Receive Date: 20090511
  Receipt Date: 20090511
  Transmission Date: 20091009
  Serious: Yes (Other)
  Sender: FDA-Public Use
  Company Number: None

PATIENT
  Age: 55 Year
  Sex: Female
  Weight: 54.4316 kg

DRUGS (3)
  1. LIPITOR [Suspect]
     Indication: ARTERIOSCLEROSIS
     Dosage: 20MGS ONE DAILY PO
     Route: 048
     Dates: start: 20090208, end: 20090215
  2. LIPITOR [Suspect]
     Indication: ARTERIOSCLEROSIS
     Dosage: 20MGS ONE DAILY PO
     Route: 048
     Dates: start: 20090308, end: 20090405
  3. .. [Concomitant]

REACTIONS (7)
  - ABASIA [None]
  - EPISTAXIS [None]
  - FATIGUE [None]
  - GASTRIC DISORDER [None]
  - MIDDLE INSOMNIA [None]
  - MUSCLE SPASMS [None]
  - MYALGIA [None]
